FAERS Safety Report 6424735-4 (Version None)
Quarter: 2009Q4

REPORT INFORMATION
  Report Type: 
  Country: None (occurrence: None)
  Receive Date: 20091029
  Receipt Date: 20090406
  Transmission Date: 20100525
  Serious: Yes (Hospitalization)
  Sender: FDA-Public Use
  Company Number: 190786USA

PATIENT
  Age: 56 Year
  Sex: Female

DRUGS (4)
  1. CLONAZEPAM [Suspect]
     Indication: ANXIETY
     Dosage: 1.5 MG (0.5 MG, TID), ORAL
     Route: 048
     Dates: start: 20090101, end: 20090301
  2. CLONAZEPAM [Suspect]
     Indication: ANXIETY
     Dosage: 0.5 MG, TID, ORAL
     Route: 048
     Dates: start: 20060101, end: 20090101
  3. CLONAZEPAM [Suspect]
     Indication: ANXIETY
  4. MIRTAZAPINE [Concomitant]

REACTIONS (3)
  - ANXIETY [None]
  - DEPRESSION [None]
  - DRUG INEFFECTIVE [None]
